FAERS Safety Report 21725796 (Version 1)
Quarter: 2022Q4

REPORT INFORMATION
  Report Type: Spontaneous
  Country: US (occurrence: US)
  Receive Date: 20221214
  Receipt Date: 20221214
  Transmission Date: 20230113
  Serious: Yes (Other)
  Sender: FDA-Public Use
  Company Number: ENDG22-07223

PATIENT
  Age: 36 Year
  Sex: Male

DRUGS (2)
  1. COLCHICINE [Suspect]
     Active Substance: COLCHICINE
     Indication: Gout
     Dosage: UNK UNKNOWN, UNKNOWN (TOOK MORE THAN PRESCRIBED)
     Route: 065
  2. COLCHICINE [Suspect]
     Active Substance: COLCHICINE
     Dosage: UNK UNKNOWN, UNKNOWN
     Route: 065

REACTIONS (3)
  - Lupus-like syndrome [Unknown]
  - Intentional product use issue [Unknown]
  - Urticaria thermal [Unknown]
